FAERS Safety Report 10153764 (Version 1)
Quarter: 2014Q2

REPORT INFORMATION
  Report Type: Spontaneous
  Country: BR (occurrence: BR)
  Receive Date: 20140506
  Receipt Date: 20140506
  Transmission Date: 20141212
  Serious: Yes (Other)
  Sender: FDA-Public Use
  Company Number: BR-UCBSA-120173

PATIENT
  Sex: Female

DRUGS (2)
  1. CIMZIA [Suspect]
     Indication: RHEUMATOID ARTHRITIS
     Dosage: 200 MG/ML
     Route: 058
     Dates: start: 2014, end: 2014
  2. HUMIRA [Concomitant]
     Indication: RHEUMATOID ARTHRITIS

REACTIONS (1)
  - Pulmonary tuberculosis [Recovering/Resolving]
